FAERS Safety Report 6760952-1 (Version None)
Quarter: 2010Q2

REPORT INFORMATION
  Report Type: 
  Country: None (occurrence: None)
  Receive Date: 20100608
  Receipt Date: 20100531
  Transmission Date: 20101027
  Serious: Yes (Death, Other)
  Sender: FDA-Public Use
  Company Number: ES-ELI_LILLY_AND_COMPANY-ES201006001070

PATIENT
  Age: 70 Year
  Sex: Male

DRUGS (2)
  1. GEMCITABINE HYDROCHLORIDE [Suspect]
     Indication: BONE CANCER METASTATIC
     Dosage: UNK, UNK
  2. CARBOPLATIN [Concomitant]
     Indication: BONE CANCER METASTATIC

REACTIONS (3)
  - FEBRILE NEUTROPENIA [None]
  - HAEMOLYTIC URAEMIC SYNDROME [None]
  - URAEMIC ENCEPHALOPATHY [None]
